FAERS Safety Report 11433633 (Version 1)
Quarter: 2015Q3

REPORT INFORMATION
  Report Type: Spontaneous
  Country: US (occurrence: US)
  Receive Date: 20150831
  Receipt Date: 20150831
  Transmission Date: 20151125
  Serious: No
  Sender: FDA-Public Use
  Company Number: US-009507513-1508USA013234

PATIENT
  Age: 40 Year
  Sex: Female
  Weight: 90.7 kg

DRUGS (1)
  1. NUVARING [Suspect]
     Active Substance: ETHINYL ESTRADIOL\ETONOGESTREL
     Dosage: DOSE/FREQUENCY: 1 RING/ 3 WEEKS IN 1 WEEK OUT
     Route: 067
     Dates: start: 20140227

REACTIONS (2)
  - Abnormal withdrawal bleeding [Unknown]
  - Incorrect drug administration duration [Unknown]
